FAERS Safety Report 16698093 (Version 1)
Quarter: 2019Q3

REPORT INFORMATION
  Report Type: Spontaneous
  Country: US (occurrence: US)
  Receive Date: 20190813
  Receipt Date: 20190813
  Transmission Date: 20191004
  Serious: Yes (Other)
  Sender: FDA-Public Use
  Company Number: US-PFIZER INC-2019343206

PATIENT
  Age: 66 Year
  Sex: Male
  Weight: 122.47 kg

DRUGS (1)
  1. LYRICA [Suspect]
     Active Substance: PREGABALIN
     Indication: FIBROMYALGIA
     Dosage: 225 MG, 2X/DAY
     Route: 048

REACTIONS (4)
  - Muscular dystrophy [Unknown]
  - Pre-existing condition improved [Unknown]
  - Dementia [Unknown]
  - Therapeutic response unexpected [Unknown]
